FAERS Safety Report 17926034 (Version 2)
Quarter: 2020Q3

REPORT INFORMATION
  Report Type: Spontaneous
  Country: US (occurrence: US)
  Receive Date: 20200622
  Receipt Date: 20200910
  Transmission Date: 20201103
  Serious: Yes (Other)
  Sender: FDA-Public Use
  Company Number: US-TEVA-2020-US-1788210

PATIENT
  Sex: Male

DRUGS (10)
  1. LISINOPRIL. [Concomitant]
     Active Substance: LISINOPRIL
  2. PAXIL [Concomitant]
     Active Substance: PAROXETINE HYDROCHLORIDE
  3. MS CONTIN [Suspect]
     Active Substance: MORPHINE SULFATE
     Route: 065
  4. OMEPRAZOLE. [Concomitant]
     Active Substance: OMEPRAZOLE
  5. BACTRIM [Suspect]
     Active Substance: SULFAMETHOXAZOLE\TRIMETHOPRIM
     Route: 065
  6. FENTANYL. [Suspect]
     Active Substance: FENTANYL
     Indication: PRODUCT USED FOR UNKNOWN INDICATION
     Route: 065
  7. MORPHINE IR [Suspect]
     Active Substance: MORPHINE
     Dosage: MORPHINE IR
     Route: 065
  8. TESTOSTERONE. [Concomitant]
     Active Substance: TESTOSTERONE
  9. PERCOCET [Suspect]
     Active Substance: ACETAMINOPHEN\OXYCODONE HYDROCHLORIDE
     Route: 065
  10. SUBOXONE [Concomitant]
     Active Substance: BUPRENORPHINE HYDROCHLORIDE\NALOXONE HYDROCHLORIDE

REACTIONS (21)
  - Dizziness postural [Unknown]
  - Loss of personal independence in daily activities [Unknown]
  - Feeling abnormal [Unknown]
  - Feeling jittery [Unknown]
  - Depression [Unknown]
  - Irritability [Unknown]
  - Bedridden [Unknown]
  - Dyspnoea [Unknown]
  - Dissociation [Unknown]
  - Application site rash [Unknown]
  - Suicidal ideation [Unknown]
  - Product dose omission issue [Unknown]
  - Somnolence [Unknown]
  - Constipation [Unknown]
  - Marital problem [Unknown]
  - Swollen tongue [Unknown]
  - Tongue blistering [Unknown]
  - Chronic obstructive pulmonary disease [Unknown]
  - Drug dependence [Unknown]
  - Insomnia [Unknown]
  - Confusional state [Unknown]
